FAERS Safety Report 5932942-X (Version None)
Quarter: 2008Q4

REPORT INFORMATION
  Report Type: 
  Country: None (occurrence: None)
  Receive Date: 20081028
  Receipt Date: 20081023
  Transmission Date: 20090506
  Serious: Yes (Hospitalization)
  Sender: FDA-Public Use
  Company Number: US-MERCK-0810USA04325

PATIENT
  Age: 86 Year
  Sex: Female

DRUGS (5)
  1. SINGULAIR [Suspect]
     Indication: ASTHMA
     Route: 048
  2. ADVAIR DISKUS 100/50 [Concomitant]
     Route: 065
  3. SPIRIVA [Concomitant]
     Route: 065
  4. PREDNISONE [Concomitant]
     Route: 065
  5. ALBUTEROL [Concomitant]
     Route: 065

REACTIONS (2)
  - DYSPNOEA [None]
  - PNEUMONIA [None]
